FAERS Safety Report 19657178 (Version 1)
Quarter: 2021Q3

REPORT INFORMATION
  Report Type: Spontaneous
  Country: US (occurrence: US)
  Receive Date: 20210804
  Receipt Date: 20210804
  Transmission Date: 20211014
  Serious: Yes (Other)
  Sender: FDA-Public Use
  Company Number: US-ASTRAZENECA-2021A664980

PATIENT
  Age: 65 Year
  Sex: Female

DRUGS (1)
  1. CALQUENCE [Suspect]
     Active Substance: ACALABRUTINIB
     Indication: CHRONIC LYMPHOCYTIC LEUKAEMIA
     Dosage: DOSE UNKNOWN
     Route: 048
     Dates: start: 2018, end: 2018

REACTIONS (4)
  - Headache [Unknown]
  - Malignant neoplasm progression [Unknown]
  - Hypertension [Unknown]
  - Diarrhoea [Unknown]
